FAERS Safety Report 6728052-4 (Version None)
Quarter: 2010Q2

REPORT INFORMATION
  Report Type: 
  Country: None (occurrence: None)
  Receive Date: 20100517
  Receipt Date: 20100506
  Transmission Date: 20101027
  Serious: Yes (Other)
  Sender: FDA-Public Use
  Company Number: JP-BAYER-200912704BYL

PATIENT
  Age: 71 Year
  Sex: Male
  Weight: 55 kg

DRUGS (6)
  1. NEXAVAR [Suspect]
     Indication: RENAL CELL CARCINOMA
     Dosage: UNIT DOSE: 200 MG
     Route: 048
     Dates: start: 20090810, end: 20090907
  2. NEXAVAR [Suspect]
     Dosage: UNIT DOSE: 200 MG
     Route: 048
     Dates: start: 20090623, end: 20090706
  3. NEXAVAR [Suspect]
     Dosage: TOTAL DAILY DOSE: 800 MG  UNIT DOSE: 200 MG
     Route: 048
     Dates: start: 20090413, end: 20090601
  4. MUCOSTA [Concomitant]
     Indication: PNEUMONIA
     Route: 048
     Dates: start: 20090406, end: 20090511
  5. MUCOSOLVAN [Concomitant]
     Indication: PNEUMONIA
     Route: 048
     Dates: start: 20090406, end: 20090511
  6. KERATINAMIN [Concomitant]
     Indication: PALMAR-PLANTAR ERYTHRODYSAESTHESIA SYNDROME
     Route: 061
     Dates: start: 20090416

REACTIONS (3)
  - DRUG ERUPTION [None]
  - HEPATIC FUNCTION ABNORMAL [None]
  - PALMAR-PLANTAR ERYTHRODYSAESTHESIA SYNDROME [None]
